FAERS Safety Report 10929461 (Version 1)
Quarter: 2015Q1

REPORT INFORMATION
  Report Type: Spontaneous
  Country: US (occurrence: None)
  Receive Date: 20150318
  Receipt Date: 20150318
  Transmission Date: 20150721
  Serious: Yes (Hospitalization, Disabling)
  Sender: FDA-Public Use
  Company Number: None

PATIENT
  Age: 4 Year
  Sex: Female
  Weight: 43.09 kg

DRUGS (1)
  1. MIRALAX [Suspect]
     Active Substance: POLYETHYLENE GLYCOL 3350
     Indication: ENCOPRESIS
     Dosage: 17GMS-HALVED IN 2 DOSES DAILY
     Route: 048
     Dates: start: 200608, end: 201112

REACTIONS (26)
  - Headache [None]
  - Asthenia [None]
  - Hyperhidrosis [None]
  - Photosensitivity reaction [None]
  - Abdominal distension [None]
  - Mood swings [None]
  - Anger [None]
  - Deafness [None]
  - Muscular weakness [None]
  - Depression [None]
  - Throat irritation [None]
  - Abnormal faeces [None]
  - Diarrhoea [None]
  - Encopresis [None]
  - Sinus disorder [None]
  - Decreased appetite [None]
  - Hypoaesthesia [None]
  - Respiratory disorder [None]
  - Nausea [None]
  - Motion sickness [None]
  - Fatigue [None]
  - Anxiety [None]
  - Heart rate decreased [None]
  - Urinary tract infection [None]
  - Dizziness [None]
  - Eczema [None]

NARRATIVE: CASE EVENT DATE: 20150317
